FAERS Safety Report 7674205-0 (Version None)
Quarter: 2011Q3

REPORT INFORMATION
  Report Type: 
  Country: None (occurrence: None)
  Receive Date: 20110808
  Receipt Date: 20110725
  Transmission Date: 20111222
  Serious: Yes (Other)
  Sender: FDA-Public Use
  Company Number: AUR-APL-2011-04440

PATIENT
  Age: 41 Year
  Sex: Female
  Weight: 54.4 kg

DRUGS (4)
  1. LAMOTRIGINE [Suspect]
     Indication: BIPOLAR DISORDER
     Dosage: 100 MG (100 MG, 1 IN 1 D), ORAL
     Route: 048
     Dates: start: 20110501, end: 20110701
  2. TOPAMAX [Concomitant]
  3. CHANTIX [Suspect]
     Indication: SMOKING CESSATION THERAPY
     Dosage: 0.5 MG (0.5 MG, 1 IN 1 D), ORAL, 1 MG (0.5 MG, 2 IN 1 D)
     Route: 048
     Dates: start: 20110101, end: 20110720
  4. CHANTIX [Suspect]
     Indication: SMOKING CESSATION THERAPY
     Dosage: 0.5 MG (0.5 MG, 1 IN 1 D), ORAL, 1 MG (0.5 MG, 2 IN 1 D)
     Route: 048
     Dates: start: 20110101, end: 20110101

REACTIONS (6)
  - NIGHTMARE [None]
  - ABNORMAL DREAMS [None]
  - EATING DISORDER [None]
  - DEPRESSION [None]
  - CONDITION AGGRAVATED [None]
  - BIPOLAR DISORDER [None]
